FAERS Safety Report 10956767 (Version 1)
Quarter: 2015Q1

REPORT INFORMATION
  Report Type: Spontaneous
  Country: US (occurrence: US)
  Receive Date: 20150326
  Receipt Date: 20150326
  Transmission Date: 20150721
  Serious: No
  Sender: FDA-Public Use
  Company Number: US-MYLANLABS-2014M1001901

PATIENT
  Sex: Male

DRUGS (4)
  1. EMSAM [Suspect]
     Active Substance: SELEGILINE
     Dosage: 6 MG/DAY
     Route: 062
     Dates: start: 20140807
  2. CAFFEINE. [Interacting]
     Active Substance: CAFFEINE
     Indication: FATIGUE
     Dosage: 8000 MG, ONCE
     Route: 048
     Dates: start: 20140812, end: 20140812
  3. EMSAM [Interacting]
     Active Substance: SELEGILINE
     Indication: ANXIETY
  4. EMSAM [Interacting]
     Active Substance: SELEGILINE
     Indication: OFF LABEL USE

REACTIONS (5)
  - Abdominal distension [Not Recovered/Not Resolved]
  - Drug interaction [Recovered/Resolved]
  - Nervousness [Not Recovered/Not Resolved]
  - Dysuria [Not Recovered/Not Resolved]
  - Asthenia [Not Recovered/Not Resolved]

NARRATIVE: CASE EVENT DATE: 20140812
